FAERS Safety Report 6446849-5 (Version None)
Quarter: 2009Q4

REPORT INFORMATION
  Report Type: 
  Country: None (occurrence: None)
  Receive Date: 20091119
  Receipt Date: 20091110
  Transmission Date: 20100525
  Serious: Yes (Other)
  Sender: FDA-Public Use
  Company Number: GB-JNJFOC-20090908374

PATIENT
  Age: 51 Year
  Sex: Female
  Weight: 67 kg

DRUGS (6)
  1. REMICADE [Suspect]
     Route: 042
     Dates: start: 20020815, end: 20040621
  2. REMICADE [Suspect]
     Indication: RHEUMATOID ARTHRITIS
     Route: 042
     Dates: start: 20020815, end: 20040621
  3. METHOTREXATE [Concomitant]
  4. OTHER BIOLOGICS [Concomitant]
     Indication: RHEUMATOID ARTHRITIS
  5. CO DYDRAMOL [Concomitant]
  6. FOLIC ACID [Concomitant]

REACTIONS (2)
  - COLON CANCER [None]
  - HODGKIN'S DISEASE STAGE II [None]
